FAERS Safety Report 5584164-2 (Version None)
Quarter: 2008Q1

REPORT INFORMATION
  Report Type: 
  Country: None (occurrence: None)
  Receive Date: 20080108
  Receipt Date: 20071229
  Transmission Date: 20080703
  Serious: Yes (Hospitalization)
  Sender: FDA-Public Use
  Company Number: US-AMGEN-STX258561

PATIENT
  Sex: Female

DRUGS (3)
  1. ENBREL [Suspect]
     Indication: RHEUMATOID ARTHRITIS
     Route: 058
     Dates: start: 20070301
  2. METHOTREXATE [Concomitant]
     Route: 065
     Dates: start: 20010101
  3. PLAQUENIL [Concomitant]
     Route: 065
     Dates: start: 20010101

REACTIONS (2)
  - ARTHRALGIA [None]
  - JOINT STIFFNESS [None]
